FAERS Safety Report 20655312 (Version 3)
Quarter: 2022Q2

REPORT INFORMATION
  Report Type: Report from Study
  Country: CN (occurrence: None)
  Receive Date: 20220330
  Receipt Date: 20220413
  Transmission Date: 20220721
  Serious: Yes (Death, Hospitalization)
  Sender: FDA-Public Use
  Company Number: CN-Eisai Medical Research-EC-2022-111051

PATIENT
  Age: 77 Year
  Sex: Male
  Weight: 60 kg

DRUGS (8)
  1. LENVATINIB [Suspect]
     Active Substance: LENVATINIB
     Indication: Hepatocellular carcinoma
     Route: 048
     Dates: start: 20220224, end: 2022
  2. QUAVONLIMAB [Suspect]
     Active Substance: QUAVONLIMAB
     Indication: Hepatocellular carcinoma
     Dosage: 425 MG CONTAINS QUAVONLIMAB 25 MG (+) PEMBROLIZUMAB 400 MG
     Route: 041
     Dates: start: 20220224, end: 20220224
  3. BICYCLOL [Concomitant]
     Active Substance: BICYCLOL
     Dates: start: 20220211
  4. TRANSMETIL [ADEMETIONINE 1,4-BUTANEDISULFONATE] [Concomitant]
     Dates: start: 20220211
  5. PHOSPHOLIPID [Concomitant]
     Active Substance: PHOSPHOLIPID
     Dates: start: 20220211
  6. HERBALS\DIAMMONIUM GLYCYRRHIZINATE [Concomitant]
     Active Substance: HERBALS\DIAMMONIUM GLYCYRRHIZINATE
     Dates: start: 20220214
  7. OXYCODONE AND ACETAMINOPHEN [Concomitant]
     Active Substance: ACETAMINOPHEN\OXYCODONE HYDROCHLORIDE
     Dates: start: 20220218
  8. PEMBROLIZUMAB [Suspect]
     Active Substance: PEMBROLIZUMAB

REACTIONS (2)
  - Hepatic encephalopathy [Fatal]
  - Malignant neoplasm progression [Not Recovered/Not Resolved]

NARRATIVE: CASE EVENT DATE: 20220310
